APPROVED DRUG PRODUCT: CARISOPRODOL AND ASPIRIN
Active Ingredient: ASPIRIN; CARISOPRODOL
Strength: 325MG;200MG
Dosage Form/Route: TABLET;ORAL
Application: A040116 | Product #001
Applicant: GENUS LIFESCIENCES INC
Approved: Apr 25, 1996 | RLD: No | RS: No | Type: DISCN